FAERS Safety Report 5688601-4 (Version None)
Quarter: 2008Q1

REPORT INFORMATION
  Report Type: 
  Country: None (occurrence: None)
  Receive Date: 20080331
  Receipt Date: 20080319
  Transmission Date: 20080703
  Serious: Yes (Death, Other)
  Sender: FDA-Public Use
  Company Number: JP-NOVOPROD-272667

PATIENT
  Age: 61 Year
  Sex: Male

DRUGS (8)
  1. NOVOSEVEN [Suspect]
     Indication: HAEMORRHAGE
     Dosage: 5.4-10.8
     Route: 042
     Dates: start: 20070811, end: 20070813
  2. OMEPRAL                            /00661201/ [Concomitant]
     Dosage: 40 MG, UNK
     Route: 042
     Dates: start: 20070811, end: 20070913
  3. ADONA                              /00056903/ [Concomitant]
     Dosage: 100 MG, UNK
     Route: 042
     Dates: start: 20070811, end: 20070822
  4. TRANSAMIN [Concomitant]
     Dosage: 400 MG, UNK
     Route: 042
     Dates: start: 20070811, end: 20070812
  5. FOY [Concomitant]
     Dosage: 1000 MG, UNK
     Route: 042
     Dates: start: 20070811, end: 20070812
  6. MEROPEN                            /01250501/ [Concomitant]
     Dosage: 1 G, UNK
     Route: 042
     Dates: start: 20070811, end: 20070822
  7. FRESH FROZEN PLASMA [Concomitant]
     Dosage: 5 U, UNK
     Route: 042
     Dates: start: 20070811, end: 20070812
  8. RED BLOOD CELLS [Concomitant]
     Dosage: 2 U, UNK
     Route: 042
     Dates: start: 20070811, end: 20070812

REACTIONS (2)
  - CONDITION AGGRAVATED [None]
  - HYDROCEPHALUS [None]
